FAERS Safety Report 13876898 (Version 1)
Quarter: 2017Q3

REPORT INFORMATION
  Report Type: Spontaneous
  Country: DE (occurrence: DE)
  Receive Date: 20170817
  Receipt Date: 20170817
  Transmission Date: 20171127
  Serious: Yes (Hospitalization)
  Sender: FDA-Public Use
  Company Number: DE-TEVA-795442GER

PATIENT
  Age: 65 Year
  Sex: Female
  Weight: 91 kg

DRUGS (13)
  1. ASPIRIN. [Concomitant]
     Active Substance: ASPIRIN
     Dosage: 100 MILLIGRAM DAILY;
     Route: 048
     Dates: end: 20170719
  2. CALCIUM CARBONATE. [Concomitant]
     Active Substance: CALCIUM CARBONATE
     Dosage: 1000 MILLIGRAM DAILY;
     Route: 048
     Dates: end: 20170719
  3. MELPERON SAFT [Concomitant]
     Dosage: 75 MILLIGRAM DAILY;
     Route: 048
     Dates: end: 20170719
  4. TORASEMID [Concomitant]
     Active Substance: TORSEMIDE
     Dosage: 40 MILLIGRAM DAILY;
     Route: 048
     Dates: end: 20170719
  5. CALCITRIOL. [Concomitant]
     Active Substance: CALCITRIOL
     Dosage: .25 MILLIGRAM DAILY;
     Route: 048
     Dates: end: 20170718
  6. CHLORTALIDON [Concomitant]
     Dosage: 25 MILLIGRAM DAILY;
     Route: 048
     Dates: end: 20170719
  7. ENOXAPARIN [Concomitant]
     Active Substance: ENOXAPARIN
     Dosage: .2 ML DAILY;
     Route: 058
     Dates: end: 20170719
  8. SITAGLIPTIN [Concomitant]
     Active Substance: SITAGLIPTIN
     Dosage: 25 MILLIGRAM DAILY;
     Route: 048
     Dates: end: 20170719
  9. CEFTRIAXON [Concomitant]
     Active Substance: CEFTRIAXONE
     Dosage: 2 GRAM DAILY;
     Route: 048
     Dates: end: 20170718
  10. MOXIFLOXACIN. [Suspect]
     Active Substance: MOXIFLOXACIN
     Indication: PNEUMONIA
     Dosage: 800 MILLIGRAM DAILY;
     Route: 048
     Dates: start: 20170718, end: 20170719
  11. MAGNESIUM BEUTEL [Concomitant]
     Dosage: 1 DOSAGE FORMS DAILY;
     Route: 048
     Dates: end: 20170719
  12. VIGANTOLETTEN [Concomitant]
     Active Substance: CHOLECALCIFEROL
     Dosage: 1000 IU (INTERNATIONAL UNIT) DAILY;
     Route: 048
     Dates: end: 20170719
  13. THIAMIN [Concomitant]
     Active Substance: THIAMINE
     Dosage: 200 MILLIGRAM DAILY;
     Route: 048
     Dates: end: 20170719

REACTIONS (2)
  - Transaminases increased [Recovered/Resolved]
  - Gamma-glutamyltransferase increased [Recovered/Resolved]

NARRATIVE: CASE EVENT DATE: 20170719
